FAERS Safety Report 8585820-4 (Version None)
Quarter: 2012Q3

REPORT INFORMATION
  Report Type: 
  Country: None (occurrence: None)
  Receive Date: 20120810
  Receipt Date: 20120724
  Transmission Date: 20120928
  Serious: No
  Sender: FDA-Public Use
  Company Number: US-ASTRAZENECA-2012SE52569

PATIENT
  Age: 65 Year
  Sex: Female

DRUGS (1)
  1. NEXIUM [Suspect]
     Route: 048

REACTIONS (10)
  - TORTICOLLIS [None]
  - BRONCHITIS [None]
  - NEUROPATHY PERIPHERAL [None]
  - IMPAIRED GASTRIC EMPTYING [None]
  - HIATUS HERNIA [None]
  - FIBROMYALGIA [None]
  - MIGRAINE [None]
  - GASTROOESOPHAGEAL REFLUX DISEASE [None]
  - DRY EYE [None]
  - SINUSITIS [None]
